FAERS Safety Report 18853869 (Version 1)
Quarter: 2021Q1

REPORT INFORMATION
  Report Type: Spontaneous
  Country: US (occurrence: US)
  Receive Date: 20210205
  Receipt Date: 20210205
  Transmission Date: 20210420
  Serious: No
  Sender: FDA-Public Use
  Company Number: US-GILEAD-2021-0516107

PATIENT
  Age: 49 Year
  Sex: Female

DRUGS (7)
  1. ESTROGEL [Concomitant]
     Active Substance: ESTRADIOL
  2. VITAMIN D [COLECALCIFEROL] [Concomitant]
     Active Substance: CHOLECALCIFEROL
  3. IRON [Concomitant]
     Active Substance: IRON
  4. GINGER [ZINGIBER OFFICINALE RHIZOME] [Concomitant]
     Active Substance: GINGER
  5. BIKTARVY [Suspect]
     Active Substance: BICTEGRAVIR SODIUM\EMTRICITABINE\TENOFOVIR ALAFENAMIDE FUMARATE
     Indication: HIV INFECTION
     Dosage: 1 DOSAGE FORM, QD
     Route: 048
  6. TRANEXAMIC ACID. [Concomitant]
     Active Substance: TRANEXAMIC ACID
  7. MEGESTROL [Concomitant]
     Active Substance: MEGESTROL

REACTIONS (2)
  - Alopecia [Not Recovered/Not Resolved]
  - Haemorrhage [Unknown]

NARRATIVE: CASE EVENT DATE: 202012
